FAERS Safety Report 10669793 (Version 1)
Quarter: 2014Q4

REPORT INFORMATION
  Report Type: Spontaneous
  Country: CH (occurrence: CH)
  Receive Date: 20141222
  Receipt Date: 20141222
  Transmission Date: 20150529
  Serious: Yes (Other)
  Sender: FDA-Public Use
  Company Number: CH-GLAXOSMITHKLINE-CH2014036767

PATIENT

DRUGS (5)
  1. SEREVENT [Suspect]
     Active Substance: SALMETEROL XINAFOATE
     Indication: ASTHMA
     Route: 055
     Dates: start: 2000
  2. VALDOXAN [Interacting]
     Active Substance: AGOMELATINE
     Indication: DEPRESSION
     Route: 048
     Dates: start: 201407
  3. AXOTIDE [Interacting]
     Active Substance: FLUTICASONE PROPIONATE
     Indication: ASTHMA
     Route: 055
     Dates: start: 2000
  4. NEOMERCAZOLE [Interacting]
     Active Substance: CARBIMAZOLE
     Indication: HYPERTHYROIDISM
     Route: 048
     Dates: start: 2012
  5. NICORETTE [Concomitant]
     Active Substance: NICOTINE
     Indication: SMOKING CESSATION THERAPY
     Route: 060
     Dates: start: 2008

REACTIONS (2)
  - Arthralgia [Not Recovered/Not Resolved]
  - Musculoskeletal pain [Not Recovered/Not Resolved]

NARRATIVE: CASE EVENT DATE: 201408
